FAERS Safety Report 17372223 (Version 15)
Quarter: 2025Q2

REPORT INFORMATION
  Report Type: Report from Study
  Country: CA (occurrence: CA)
  Receive Date: 20200205
  Receipt Date: 20250606
  Transmission Date: 20250717
  Serious: Yes (Hospitalization, Other)
  Sender: TAKEDA
  Company Number: CA-TAKEDA-2019TUS074322

PATIENT
  Sex: Female

DRUGS (18)
  1. VEDOLIZUMAB [Suspect]
     Active Substance: VEDOLIZUMAB
     Indication: Crohn^s disease
  2. VEDOLIZUMAB [Suspect]
     Active Substance: VEDOLIZUMAB
  3. VEDOLIZUMAB [Suspect]
     Active Substance: VEDOLIZUMAB
  4. VEDOLIZUMAB [Suspect]
     Active Substance: VEDOLIZUMAB
  5. VEDOLIZUMAB [Suspect]
     Active Substance: VEDOLIZUMAB
  6. VEDOLIZUMAB [Suspect]
     Active Substance: VEDOLIZUMAB
  7. VEDOLIZUMAB [Suspect]
     Active Substance: VEDOLIZUMAB
  8. VEDOLIZUMAB [Suspect]
     Active Substance: VEDOLIZUMAB
  9. VEDOLIZUMAB [Suspect]
     Active Substance: VEDOLIZUMAB
  10. VEDOLIZUMAB [Suspect]
     Active Substance: VEDOLIZUMAB
     Indication: Crohn^s disease
     Dosage: 108 MILLIGRAM, Q2WEEKS
     Dates: start: 20221215
  11. POTASSIUM [Concomitant]
     Active Substance: POTASSIUM
  12. LORAZEPAM [Concomitant]
     Active Substance: LORAZEPAM
  13. VITAMIN B12 [Concomitant]
     Active Substance: CYANOCOBALAMIN
  14. ALLOPURINOL [Concomitant]
     Active Substance: ALLOPURINOL
  15. COLCHICINE [Concomitant]
     Active Substance: COLCHICINE
  16. Pantopraz [Concomitant]
  17. NITROFURANTOIN [Concomitant]
     Active Substance: NITROFURANTOIN
  18. PREDNISONE [Concomitant]
     Active Substance: PREDNISONE

REACTIONS (16)
  - Gastrointestinal stoma complication [Unknown]
  - Crohn^s disease [Unknown]
  - Electrolyte imbalance [Unknown]
  - Lethargy [Unknown]
  - Gout [Unknown]
  - Blood sodium decreased [Unknown]
  - Asthenia [Unknown]
  - Gastrointestinal stoma output increased [Not Recovered/Not Resolved]
  - Dehydration [Unknown]
  - Weight decreased [Unknown]
  - Abdominal discomfort [Not Recovered/Not Resolved]
  - Abdominal mass [Unknown]
  - Malaise [Not Recovered/Not Resolved]
  - Abdominal pain [Not Recovered/Not Resolved]
  - Arthralgia [Unknown]
  - Pyrexia [Recovered/Resolved]
